FAERS Safety Report 8213276 (Version 2)
Quarter: 2013Q3

REPORT INFORMATION
  Report Type: Spontaneous
  Country: US (occurrence: US)
  Receive Date: 20111030
  Receipt Date: 20130930
  Transmission Date: 20140515
  Serious: No
  Sender: FDA-Public Use
  Company Number: US-AMGEN-USASP2011022462

PATIENT
  Age: 42 Year
  Sex: Female
  Weight: 74.83 kg

DRUGS (7)
  1. ENBREL [Suspect]
     Indication: RHEUMATOID ARTHRITIS
     Dosage: 50 MG, QWK
     Route: 058
  2. VICODIN [Concomitant]
     Dosage: 5-500 MG, UNK
     Route: 048
  3. PROVENTIL                          /00139501/ [Concomitant]
     Dosage: 90 MUG, UNK
  4. OMEPRAZOLE [Concomitant]
     Dosage: 10 MG, UNK
     Route: 048
  5. IBUPROFEN [Concomitant]
     Dosage: 800 MG, UNK
     Route: 048
  6. SULFASALAZINE [Concomitant]
     Dosage: 500 MG, UNK
     Route: 048
  7. PREDNISONE [Concomitant]
     Dosage: 5 MG, UNK

REACTIONS (4)
  - Asthma [Unknown]
  - Upper respiratory tract infection [Unknown]
  - Nasopharyngitis [Unknown]
  - Therapeutic response decreased [Unknown]
